FAERS Safety Report 10032464 (Version 1)
Quarter: 2014Q1

REPORT INFORMATION
  Report Type: Spontaneous
  Country: US (occurrence: US)
  Receive Date: 20140324
  Receipt Date: 20140324
  Transmission Date: 20141002
  Serious: No
  Sender: FDA-Public Use
  Company Number: US-SHIONOGI, INC-2014000077

PATIENT
  Sex: 0

DRUGS (2)
  1. OSPHENA [Suspect]
     Indication: OFF LABEL USE
     Dosage: 60 MG, QD
     Route: 065
  2. OSPHENA [Suspect]
     Indication: VULVOVAGINAL DRYNESS

REACTIONS (2)
  - Off label use [Unknown]
  - No adverse event [Unknown]
